FAERS Safety Report 8269580-2 (Version None)
Quarter: 2012Q2

REPORT INFORMATION
  Report Type: 
  Country: None (occurrence: None)
  Receive Date: 20120410
  Receipt Date: 20120405
  Transmission Date: 20120825
  Serious: Yes (Other)
  Sender: FDA-Public Use
  Company Number: US-AMGEN-USASP2012021782

PATIENT
  Age: 77 Year
  Sex: Male

DRUGS (17)
  1. LISINOPRIL [Concomitant]
     Dosage: UNK MG, UNK
  2. ALBUTEROL [Concomitant]
     Dosage: UNK MUG, UNK
  3. FLOVENT [Concomitant]
     Dosage: 2 UNK, UNK
  4. OXYGEN [Concomitant]
  5. MULTIVITAMIN                       /00097801/ [Concomitant]
  6. LASIX [Concomitant]
     Dosage: UNK MG, UNK
  7. FERROUS SULFATE TAB [Concomitant]
     Dosage: UNK MG, UNK
  8. VITAMIN D [Concomitant]
     Dosage: UNK IU, UNK
  9. ALPRAZOLAM [Concomitant]
     Dosage: UNK MG, UNK
  10. CRESTOR [Concomitant]
     Dosage: UNK MG, UNK
  11. LEVOTHYROXINE SODIUM [Concomitant]
     Dosage: 1 UNK, UNK
  12. TYLENOL W/ CODEINE [Concomitant]
  13. IPRATROPIUM BROMIDE NEBULES [Concomitant]
  14. FISH OIL [Concomitant]
     Dosage: UNK
  15. PROLIA [Suspect]
     Indication: OSTEOPOROSIS
     Dates: start: 20110920
  16. PROLIA [Suspect]
     Dates: start: 20110920
  17. FORADIL [Concomitant]

REACTIONS (2)
  - DIPLEGIA [None]
  - ASTHENIA [None]
